FAERS Safety Report 14779519 (Version 2)
Quarter: 2018Q2

REPORT INFORMATION
  Report Type: Report from Study
  Country: CH (occurrence: CH)
  Receive Date: 20180419
  Receipt Date: 20180511
  Transmission Date: 20180711
  Serious: Yes (Death, Other)
  Sender: FDA-Public Use
  Company Number: CH-MYLANLABS-2018M1024003

PATIENT
  Age: 64 Year
  Sex: Male

DRUGS (3)
  1. LENALIDOMIDE [Suspect]
     Active Substance: LENALIDOMIDE
     Indication: ACUTE MYELOID LEUKAEMIA
     Dosage: ON DAY 1-21
     Route: 065
  2. CYTARABINE. [Suspect]
     Active Substance: CYTARABINE
     Indication: ACUTE MYELOID LEUKAEMIA
     Dosage: 200 MG/M2 ON DAYS 1-7
     Route: 065
  3. IDARUBICIN [Suspect]
     Active Substance: IDARUBICIN
     Indication: ACUTE MYELOID LEUKAEMIA
     Dosage: 12 MG/M2 ON DAYS 1-3
     Route: 065

REACTIONS (7)
  - Face oedema [Unknown]
  - Septic shock [Fatal]
  - Rash [Unknown]
  - Bacillus infection [Fatal]
  - Neutropenia [Unknown]
  - Oedema peripheral [Unknown]
  - Central nervous system infection [Fatal]
